FAERS Safety Report 19636730 (Version 1)
Quarter: 2021Q3

REPORT INFORMATION
  Report Type: Spontaneous
  Country: GB (occurrence: GB)
  Receive Date: 20210730
  Receipt Date: 20210730
  Transmission Date: 20211014
  Serious: Yes (Other)
  Sender: FDA-Public Use
  Company Number: GB-ACCORD-233620

PATIENT
  Age: 84 Year
  Sex: Male
  Weight: 58 kg

DRUGS (12)
  1. ATORVASTATIN [Concomitant]
     Active Substance: ATORVASTATIN
     Dates: start: 20210201
  2. LEVOTHYROXINE. [Concomitant]
     Active Substance: LEVOTHYROXINE
     Dosage: TAKE AT LEAST 30 MINS BEFORE FO...
     Dates: start: 20210201
  3. TRIMETHOPRIM. [Concomitant]
     Active Substance: TRIMETHOPRIM
     Dates: start: 20210705, end: 20210708
  4. AMLODIPINE [Concomitant]
     Active Substance: AMLODIPINE BESYLATE
     Dates: start: 20210201
  5. NITROFURANTOIN/NITROFURANTOIN SODIUM [Concomitant]
     Active Substance: NITROFURANTOIN
     Dosage: FOR 7 DAYS, TO TRE...
     Dates: start: 20210602, end: 20210609
  6. PIVMECILLINAM/PIVMECILLINAM HYDROCHLORIDE [Concomitant]
     Dosage: TAKE TWO TABLETS INITIALLY THEN ONE THREE TIMES...
     Dates: start: 20210615, end: 20210618
  7. SENNA ALEXANDRINA [Concomitant]
     Active Substance: SENNA LEAF
     Dosage: ONE OR TWO TO BE TAKEN AT NIGHT AS REQUIRED FOR...
     Dates: start: 20210201
  8. LAXIDO [Concomitant]
     Active Substance: POLYETHYLENE GLYCOL 3350\POTASSIUM CHLORIDE\SODIUM BICARBONATE\SODIUM CHLORIDE
     Dosage: DISSOLVE CONTENTS OF ONE SACHET IN HALF A GLASS...
     Dates: start: 20210201
  9. AMOXICILLIN. [Concomitant]
     Active Substance: AMOXICILLIN
     Dosage: TAKE ONE 3 TIMES/DAY
     Dates: start: 20210607, end: 20210612
  10. DONEPEZIL/DONEPEZIL HYDROCHLORIDE [Suspect]
     Active Substance: DONEPEZIL HYDROCHLORIDE
     Indication: DEMENTIA ALZHEIMER^S TYPE
     Route: 048
     Dates: start: 20210601, end: 20210623
  11. HYDROCORTISONE. [Concomitant]
     Active Substance: HYDROCORTISONE
     Dates: start: 20210608, end: 20210609
  12. ZEROBASE [Concomitant]
     Active Substance: MINERAL OIL\PARAFFIN
     Dosage: APPLY 2?3 TIMES DAILY
     Dates: start: 20210201

REACTIONS (5)
  - Decreased appetite [Recovered/Resolved]
  - Hypersomnia [Recovered/Resolved]
  - Social avoidant behaviour [Recovered/Resolved]
  - Decreased interest [Recovered/Resolved]
  - Balance disorder [Recovered/Resolved]

NARRATIVE: CASE EVENT DATE: 20210621
